FAERS Safety Report 12372276 (Version 1)
Quarter: 2016Q2

REPORT INFORMATION
  Report Type: Spontaneous
  Country: US (occurrence: US)
  Receive Date: 20160516
  Receipt Date: 20160516
  Transmission Date: 20160815
  Serious: Yes (Other)
  Sender: FDA-Public Use
  Company Number: US-ACTAVIS-2016-09993

PATIENT
  Age: 50 Year
  Sex: Female

DRUGS (12)
  1. DOXORUBICIN [Concomitant]
     Active Substance: DOXORUBICIN
     Indication: METASTASES TO LIVER
     Dosage: CYCLICAL, 2 CYCLES
     Route: 065
  2. DOXORUBICIN [Concomitant]
     Active Substance: DOXORUBICIN
     Indication: INVASIVE DUCTAL BREAST CARCINOMA
     Dosage: CYCLICAL, 2 CYCLES
     Route: 065
  3. TRASTUZUMAB [Concomitant]
     Active Substance: TRASTUZUMAB
     Indication: METASTASES TO LIVER
  4. PACLITAXEL (ATLLC) [Suspect]
     Active Substance: PACLITAXEL
     Indication: METASTASES TO LIVER
  5. DOXORUBICIN [Concomitant]
     Active Substance: DOXORUBICIN
     Indication: METASTASES TO LUNG
     Dosage: CYCLICAL, 2 CYCLES
     Route: 065
  6. PACLITAXEL (ATLLC) [Suspect]
     Active Substance: PACLITAXEL
     Indication: INVASIVE DUCTAL BREAST CARCINOMA
     Dosage: UNK
     Route: 065
  7. TRASTUZUMAB [Concomitant]
     Active Substance: TRASTUZUMAB
     Indication: INVASIVE DUCTAL BREAST CARCINOMA
  8. CYCLOPHOSPHAMIDE. [Concomitant]
     Active Substance: CYCLOPHOSPHAMIDE
     Indication: METASTASES TO LIVER
     Dosage: 2 CYCLES
     Route: 065
  9. CYCLOPHOSPHAMIDE. [Concomitant]
     Active Substance: CYCLOPHOSPHAMIDE
     Indication: METASTASES TO LUNG
     Dosage: 2 CYCLES
     Route: 065
  10. PACLITAXEL (ATLLC) [Suspect]
     Active Substance: PACLITAXEL
     Indication: METASTASES TO LUNG
  11. TRASTUZUMAB [Concomitant]
     Active Substance: TRASTUZUMAB
     Indication: METASTASES TO LUNG
     Dosage: UNK
     Route: 065
  12. CYCLOPHOSPHAMIDE. [Concomitant]
     Active Substance: CYCLOPHOSPHAMIDE
     Indication: INVASIVE DUCTAL BREAST CARCINOMA
     Dosage: 2 CYCLES
     Route: 065

REACTIONS (1)
  - Anaphylactic reaction [Unknown]
